FAERS Safety Report 24017645 (Version 2)
Quarter: 2024Q3

REPORT INFORMATION
  Report Type: Spontaneous
  Country: FR (occurrence: FR)
  Receive Date: 20240627
  Receipt Date: 20240712
  Transmission Date: 20241017
  Serious: Yes (Hospitalization, Other)
  Sender: AUROBINDO
  Company Number: FR-009507513-2406FRA003393

PATIENT
  Age: 75 Year
  Sex: Male

DRUGS (12)
  1. CARBOPLATIN [Suspect]
     Active Substance: CARBOPLATIN
     Indication: Metastatic bronchial carcinoma
     Dosage: UNK (4 COURSES)
     Route: 065
     Dates: start: 202310, end: 202312
  2. ALIMTA [Suspect]
     Active Substance: PEMETREXED DISODIUM
     Indication: Metastatic bronchial carcinoma
     Dosage: UNK (4 COURSES)
     Route: 065
     Dates: start: 202310
  3. KEYTRUDA [Suspect]
     Active Substance: PEMBROLIZUMAB
     Indication: Metastatic bronchial carcinoma
     Dosage: 200 MILLIGRAM, CYCLICAL
     Route: 042
     Dates: start: 20230301, end: 20230502
  4. KEYTRUDA [Suspect]
     Active Substance: PEMBROLIZUMAB
     Indication: Lung adenocarcinoma
     Dosage: UNK (4 COURSES)
     Route: 065
     Dates: start: 202310, end: 202312
  5. BENSERAZIDE HYDROCHLORIDE\LEVODOPA [Concomitant]
     Active Substance: BENSERAZIDE HYDROCHLORIDE\LEVODOPA
     Indication: Product used for unknown indication
     Dosage: UNK
     Route: 065
  6. AZILECT [Concomitant]
     Active Substance: RASAGILINE MESYLATE
     Indication: Product used for unknown indication
     Dosage: UNK
     Route: 065
  7. Solupred [Concomitant]
     Indication: Product used for unknown indication
     Dosage: UNK
     Route: 065
  8. PRAMIPEXOLE [Concomitant]
     Active Substance: PRAMIPEXOLE\PRAMIPEXOLE DIHYDROCHLORIDE
     Indication: Product used for unknown indication
     Dosage: UNK
     Route: 065
  9. RAMIPRIL [Concomitant]
     Active Substance: RAMIPRIL
     Indication: Product used for unknown indication
     Dosage: UNK
     Route: 065
  10. CYMBALTA [Concomitant]
     Active Substance: DULOXETINE HYDROCHLORIDE
     Indication: Product used for unknown indication
     Dosage: UNK
     Route: 065
  11. DALTEPARIN SODIUM [Concomitant]
     Active Substance: DALTEPARIN SODIUM
     Indication: Product used for unknown indication
     Dosage: UNK
     Route: 065
  12. BISOPROLOL [Concomitant]
     Active Substance: BISOPROLOL\BISOPROLOL FUMARATE
     Indication: Product used for unknown indication
     Dosage: UNK
     Route: 065

REACTIONS (10)
  - Eyelid ptosis [Unknown]
  - Blood creatine phosphokinase abnormal [Unknown]
  - Muscle fatigue [Unknown]
  - Myalgia [Unknown]
  - Diplopia [Unknown]
  - Myocarditis [Recovering/Resolving]
  - Myositis [Recovered/Resolved]
  - Troponin abnormal [Unknown]
  - Myopathy [Unknown]
  - Magnetic resonance imaging abnormal [Unknown]

NARRATIVE: CASE EVENT DATE: 20230526
